FAERS Safety Report 8030793-6 (Version None)
Quarter: 2012Q1

REPORT INFORMATION
  Report Type: 
  Country: None (occurrence: None)
  Receive Date: 20120109
  Receipt Date: 20120106
  Transmission Date: 20120608
  Serious: Yes (Death)
  Sender: FDA-Public Use
  Company Number: PHHY2012FR001242

PATIENT
  Age: 69 Year
  Sex: Male

DRUGS (1)
  1. ONBREZ [Suspect]
     Dosage: UNK

REACTIONS (1)
  - RESPIRATORY FAILURE [None]
